FAERS Safety Report 17316616 (Version 3)
Quarter: 2020Q1

REPORT INFORMATION
  Report Type: Report from Study
  Country: AU (occurrence: AU)
  Receive Date: 20200124
  Receipt Date: 20200319
  Transmission Date: 20200409
  Serious: Yes (Other)
  Sender: FDA-Public Use
  Company Number: AU-VERTEX PHARMACEUTICALS-2020-000932

PATIENT
  Age: 14 Year
  Sex: Female
  Weight: 53 kg

DRUGS (9)
  1. IVACAFTOR [Concomitant]
     Active Substance: IVACAFTOR
     Indication: CYSTIC FIBROSIS LUNG
     Dosage: UNK
     Dates: start: 20150109
  2. PLACEBO [Suspect]
     Active Substance: UNSPECIFIED INGREDIENT
     Indication: CYSTIC FIBROSIS
     Dosage: 100MG/ 50MG/ 75MG AM
     Route: 048
     Dates: start: 20191203, end: 20200113
  3. VX-770 [Suspect]
     Active Substance: IVACAFTOR
     Indication: CYSTIC FIBROSIS
     Dosage: 150 MG Q12H
     Route: 048
     Dates: start: 20191203, end: 20200113
  4. SALT [Concomitant]
     Active Substance: SODIUM CHLORIDE
     Dosage: 2 DOSAGE FORM, TID
     Route: 048
     Dates: start: 2006
  5. DOXYLINE [Concomitant]
     Active Substance: DOXYCYCLINE HYDROCHLORIDE
     Indication: ACNE
     Dosage: 50 MG
     Route: 048
     Dates: start: 201902
  6. BRONCHITOL [Concomitant]
     Indication: CYSTIC FIBROSIS LUNG
     Dosage: 10 DOSAGE FORM, 5-7 DAYS A WEEK
     Dates: start: 201908
  7. CREON [Concomitant]
     Active Substance: PANCRELIPASE AMYLASE\PANCRELIPASE LIPASE\PANCRELIPASE PROTEASE
     Indication: PANCREATIC FAILURE
     Dosage: AS REQUIRED WITH FOODS
     Route: 048
     Dates: start: 200602
  8. SALBUTAMOL [Concomitant]
     Active Substance: ALBUTEROL
     Indication: CYSTIC FIBROSIS LUNG
     Dosage: 4 PUFFS
     Dates: start: 2010
  9. MOMETASONE [Concomitant]
     Active Substance: MOMETASONE
     Indication: NASAL POLYPS
     Dosage: 1 SPRAY EACH NOSTRIL
     Route: 045
     Dates: start: 2011

REACTIONS (2)
  - Anxiety [Recovered/Resolved]
  - Depression [Recovered/Resolved]

NARRATIVE: CASE EVENT DATE: 20200105
